FAERS Safety Report 9404068 (Version 2)
Quarter: 2013Q3

REPORT INFORMATION
  Report Type: Spontaneous
  Country: DE (occurrence: None)
  Receive Date: 20130712
  Receipt Date: 20130717
  Transmission Date: 20140515
  Serious: Yes (Hospitalization)
  Sender: FDA-Public Use
  Company Number: TPA2013A06541

PATIENT
  Age: 14 Year
  Sex: Female

DRUGS (1)
  1. COLCHICINE (COLCHICINE) [Suspect]
     Dosage: 12.5 MG (0.5 MG, 25 IN 1 D)

REACTIONS (6)
  - Suicide attempt [None]
  - Visual impairment [None]
  - Drug level increased [None]
  - Nausea [None]
  - Abdominal pain [None]
  - Intentional overdose [None]
